FAERS Safety Report 7750543-8 (Version None)
Quarter: 2011Q3

REPORT INFORMATION
  Report Type: 
  Country: None (occurrence: None)
  Receive Date: 20110914
  Receipt Date: 20110909
  Transmission Date: 20111222
  Serious: Yes (Hospitalization)
  Sender: FDA-Public Use
  Company Number: BR-ABBOTT-11P-020-0853063-00

PATIENT
  Sex: Male
  Weight: 70 kg

DRUGS (4)
  1. SERTRALINE HYDROCHLORIDE [Concomitant]
     Indication: MAJOR DEPRESSION
     Route: 048
  2. DEPAKENE [Suspect]
     Indication: MAJOR DEPRESSION
     Route: 048
     Dates: start: 20110909
  3. DEPAKOTE [Suspect]
     Indication: MAJOR DEPRESSION
     Route: 048
  4. DEPAKENE [Suspect]
     Route: 048
     Dates: end: 20110906

REACTIONS (6)
  - HYPOTENSION [None]
  - ABDOMINAL PAIN UPPER [None]
  - HYPERHIDROSIS [None]
  - DYSPEPSIA [None]
  - RETCHING [None]
  - HYPERCHLORHYDRIA [None]
